FAERS Safety Report 4410693-0 (Version None)
Quarter: 2004Q3

REPORT INFORMATION
  Report Type: 
  Country: None (occurrence: None)
  Receive Date: 20040728
  Receipt Date: 20040728
  Transmission Date: 20050211
  Serious: No
  Sender: FDA-Public Use
  Company Number: None

PATIENT
  Age: 66 Year
  Sex: Female
  Weight: 89 kg

DRUGS (6)
  1. CLODRONATE  1600 MG. (MSABP B-34) OR PLACEBO [Suspect]
     Indication: METASTASES TO BONE
     Dosage: 2 TAB QD X 3 YEARS
     Dates: start: 20031008
  2. CLODRONATE  1600 MG. (MSABP B-34) OR PLACEBO [Suspect]
     Indication: PROPHYLAXIS
     Dosage: 2 TAB QD X 3 YEARS
     Dates: start: 20031008
  3. BEXTRA [Concomitant]
  4. THYROID(SYNTHROID) [Concomitant]
  5. KEFLEX [Concomitant]
  6. PLACEBO [Suspect]

REACTIONS (1)
  - BREAST CELLULITIS [None]
